FAERS Safety Report 8308432-6 (Version None)
Quarter: 2012Q1

REPORT INFORMATION
  Report Type: 
  Country: None (occurrence: None)
  Receive Date: 20120327
  Receipt Date: 20091106
  Transmission Date: 20120608
  Serious: Yes (Other)
  Sender: FDA-Public Use
  Company Number: PHEH2009US15432

PATIENT
  Age: 61 Week
  Sex: Male

DRUGS (1)
  1. GLEEVEC [Suspect]
     Indication: MALIGNANT MELANOMA
     Dosage: 600 MG, QD, ORAL
     Route: 048

REACTIONS (1)
  - NEOPLASM MALIGNANT [None]
